FAERS Safety Report 16051465 (Version 1)
Quarter: 2019Q1

REPORT INFORMATION
  Report Type: Spontaneous
  Country: US (occurrence: US)
  Receive Date: 20190206
  Receipt Date: 20190206
  Transmission Date: 20190418
  Serious: Yes (Hospitalization)
  Sender: FDA-Public Use
  Company Number: None

PATIENT
  Age: 82 Year
  Sex: Male
  Weight: 75 kg

DRUGS (2)
  1. BENZTROPINE. [Suspect]
     Active Substance: BENZTROPINE
     Indication: DROOLING
     Dosage: ?          OTHER DOSE:0.5MG;?
     Route: 048
     Dates: start: 20181109, end: 20181114
  2. HALOPERIDOL. [Suspect]
     Active Substance: HALOPERIDOL
     Dates: start: 20181112, end: 20181112

REACTIONS (6)
  - Acute kidney injury [None]
  - Confusional state [None]
  - Mental status changes [None]
  - Agitation [None]
  - Urinary retention [None]
  - Psychotic disorder [None]

NARRATIVE: CASE EVENT DATE: 20181114
